FAERS Safety Report 18182440 (Version 1)
Quarter: 2020Q3

REPORT INFORMATION
  Report Type: Spontaneous
  Country: US (occurrence: US)
  Receive Date: 20200821
  Receipt Date: 20200821
  Transmission Date: 20201103
  Serious: No
  Sender: FDA-Public Use
  Company Number: US-SHIRE-US202026445

PATIENT
  Age: 29 Year
  Sex: Female

DRUGS (6)
  1. NATPARA (PARATHYROID HORMONE) [Suspect]
     Active Substance: PARATHYROID HORMONE
     Indication: PRODUCT USED FOR UNKNOWN INDICATION
     Dosage: 75 MICROGRAM, 1X/DAY:QD
     Route: 050
     Dates: start: 201609, end: 201909
  2. NATPARA (PARATHYROID HORMONE) [Suspect]
     Active Substance: PARATHYROID HORMONE
     Dosage: UNK
     Route: 050
     Dates: start: 201910
  3. NATPARA (PARATHYROID HORMONE) [Suspect]
     Active Substance: PARATHYROID HORMONE
     Indication: PRODUCT USED FOR UNKNOWN INDICATION
     Dosage: 75 MICROGRAM, 1X/DAY:QD
     Route: 050
     Dates: start: 201609, end: 201909
  4. NATPARA (PARATHYROID HORMONE) [Suspect]
     Active Substance: PARATHYROID HORMONE
     Dosage: UNK
     Route: 050
     Dates: start: 201910
  5. NATPARA (PARATHYROID HORMONE) [Suspect]
     Active Substance: PARATHYROID HORMONE
     Indication: PRODUCT USED FOR UNKNOWN INDICATION
     Dosage: 75 MICROGRAM, 1X/DAY:QD
     Route: 050
     Dates: start: 201609, end: 201909
  6. NATPARA (PARATHYROID HORMONE) [Suspect]
     Active Substance: PARATHYROID HORMONE
     Dosage: UNK
     Route: 050
     Dates: start: 201910

REACTIONS (7)
  - Paraesthesia [Recovered/Resolved]
  - Device issue [Unknown]
  - Incorrect dose administered [Unknown]
  - Recalled product [Unknown]
  - Myalgia [Recovered/Resolved]
  - Expired device used [Unknown]
  - Muscle spasms [Recovered/Resolved]

NARRATIVE: CASE EVENT DATE: 2019
